FAERS Safety Report 20539811 (Version 1)
Quarter: 2022Q1

REPORT INFORMATION
  Report Type: Spontaneous
  Country: FR (occurrence: FR)
  Receive Date: 20220302
  Receipt Date: 20220302
  Transmission Date: 20220423
  Serious: Yes (Hospitalization)
  Sender: FDA-Public Use
  Company Number: None

PATIENT
  Age: 72 Year
  Sex: Female
  Weight: 83 kg

DRUGS (10)
  1. VELCADE [Suspect]
     Active Substance: BORTEZOMIB
     Indication: Plasma cell myeloma
     Route: 058
     Dates: start: 20210616
  2. DARZALEX [Suspect]
     Active Substance: DARATUMUMAB
     Indication: Plasma cell myeloma
     Route: 058
     Dates: start: 20210616
  3. DARZALEX [Suspect]
     Active Substance: DARATUMUMAB
     Route: 058
     Dates: start: 20210421, end: 20210512
  4. ATENOLOL [Suspect]
     Active Substance: ATENOLOL
     Indication: Ventricular extrasystoles
     Route: 048
     Dates: start: 20210616, end: 20211011
  5. CANDESARTAN HYDROCHLOROTHIAZIDE ACTAVIS [Concomitant]
     Indication: Hypertension
     Route: 065
  6. LEVOTHYROXINE [Concomitant]
     Active Substance: LEVOTHYROXINE
     Indication: Hypothyroidism
     Route: 048
  7. ELIQUIS [Concomitant]
     Active Substance: APIXABAN
     Indication: Pulmonary embolism
     Dosage: 5MG 2-0-2
     Route: 048
     Dates: start: 202105, end: 20210525
  8. ELIQUIS [Concomitant]
     Active Substance: APIXABAN
     Dosage: 5MG 1-0-1
     Route: 048
     Dates: start: 20210525
  9. EZETIMIBE\ROSUVASTATIN [Concomitant]
     Active Substance: EZETIMIBE\ROSUVASTATIN
     Indication: Dyslipidaemia
     Route: 048
  10. REVLIMID [Concomitant]
     Active Substance: LENALIDOMIDE
     Indication: Plasma cell myeloma
     Route: 048
     Dates: start: 20210421, end: 20210512

REACTIONS (1)
  - Chest discomfort [Recovering/Resolving]

NARRATIVE: CASE EVENT DATE: 20210904
